FAERS Safety Report 7489912-2 (Version None)
Quarter: 2011Q2

REPORT INFORMATION
  Report Type: 
  Country: None (occurrence: None)
  Receive Date: 20110512
  Receipt Date: 20110429
  Transmission Date: 20111010
  Serious: Yes (Hospitalization)
  Sender: FDA-Public Use
  Company Number: 2011CP000068

PATIENT
  Age: 60 Year
  Sex: Male

DRUGS (7)
  1. FLOXACILLIN SODIUM [Suspect]
     Indication: STAPHYLOCOCCAL SEPSIS
     Dosage: 2 GM;4/1DAY;IV
     Route: 042
     Dates: start: 20100423, end: 20100518
  2. AMLODIPINE [Concomitant]
  3. ASPIRIN [Concomitant]
  4. ACETAMINOPHEN [Suspect]
     Indication: PAIN
     Dosage: 1 GM;4/1DAY;IV
     Route: 042
     Dates: start: 20100423, end: 20100518
  5. SEREVENT [Concomitant]
  6. LISINOPRIL [Concomitant]
  7. IPRATROPIUM BROMIDE [Concomitant]

REACTIONS (2)
  - METABOLIC ACIDOSIS [None]
  - PYROGLUTAMATE INCREASED [None]
